FAERS Safety Report 12999952 (Version 1)
Quarter: 2016Q4

REPORT INFORMATION
  Report Type: Spontaneous
  Country: US (occurrence: US)
  Receive Date: 20161205
  Receipt Date: 20161205
  Transmission Date: 20170207
  Serious: Yes (Other)
  Sender: FDA-Public Use
  Company Number: US-BAUSCH-BL-2016-030527

PATIENT
  Sex: Male

DRUGS (5)
  1. LUMIGAN [Suspect]
     Active Substance: BIMATOPROST
     Indication: INTRAOCULAR PRESSURE INCREASED
     Dosage: EVERY NIGHT AT BEDTIME
     Route: 047
  2. DUREZOL [Suspect]
     Active Substance: DIFLUPREDNATE
     Indication: INTRAOCULAR PRESSURE INCREASED
     Route: 065
  3. OFLOXACIN. [Suspect]
     Active Substance: OFLOXACIN
     Indication: INTRAOCULAR PRESSURE INCREASED
     Dosage: EVERY NIGHT AT BEDTIME
     Route: 047
  4. DORZOLAMIDE [Suspect]
     Active Substance: DORZOLAMIDE
     Indication: INTRAOCULAR PRESSURE INCREASED
     Route: 047
  5. LATANOPROST. [Suspect]
     Active Substance: LATANOPROST
     Indication: INTRAOCULAR PRESSURE INCREASED
     Dosage: EVERY NIGHT AT BEDTIME
     Route: 047

REACTIONS (4)
  - Blindness [Recovered/Resolved]
  - Drug ineffective [Recovered/Resolved]
  - Stent placement [Recovered/Resolved]
  - Medication error [Unknown]
